FAERS Safety Report 22979581 (Version 4)
Quarter: 2024Q1

REPORT INFORMATION
  Report Type: Spontaneous
  Country: US (occurrence: US)
  Receive Date: 20230925
  Receipt Date: 20240122
  Transmission Date: 20240410
  Serious: No
  Sender: FDA-Public Use
  Company Number: US-PFIZER INC-202300303806

PATIENT
  Age: 21 Year
  Sex: Male
  Weight: 106.58 kg

DRUGS (3)
  1. OXBRYTA [Suspect]
     Active Substance: VOXELOTOR
     Indication: Sickle cell disease
     Dosage: UNK
  2. OXBRYTA [Suspect]
     Active Substance: VOXELOTOR
     Dosage: 1500 MG, 1X/DAY
     Route: 048
  3. OXBRYTA [Suspect]
     Active Substance: VOXELOTOR
     Dosage: 500 MG/2 TABLETS BY MOUTH ONCE DAILY
     Route: 048

REACTIONS (2)
  - Nausea [Unknown]
  - Abdominal discomfort [Unknown]
